FAERS Safety Report 7673894-4 (Version None)
Quarter: 2011Q3

REPORT INFORMATION
  Report Type: 
  Country: None (occurrence: None)
  Receive Date: 20110810
  Receipt Date: 20110215
  Transmission Date: 20111222
  Serious: No
  Sender: FDA-Public Use
  Company Number: US-GLAXOSMITHKLINE-A0914728A

PATIENT

DRUGS (1)
  1. PAXIL [Suspect]
     Indication: PRODUCT USED FOR UNKNOWN INDICATION
     Route: 065

REACTIONS (5)
  - WITHDRAWAL SYNDROME [None]
  - ADVERSE DRUG REACTION [None]
  - QUALITY OF LIFE DECREASED [None]
  - ILL-DEFINED DISORDER [None]
  - PARTNER STRESS [None]
